FAERS Safety Report 15455904 (Version 1)
Quarter: 2018Q3

REPORT INFORMATION
  Report Type: Spontaneous
  Country: US (occurrence: US)
  Receive Date: 20180927
  Receipt Date: 20180927
  Transmission Date: 20181021
  Serious: Yes (Hospitalization)
  Sender: FDA-Public Use
  Company Number: None

PATIENT
  Age: 70 Year
  Sex: Male

DRUGS (2)
  1. FUROSEMIDE. [Suspect]
     Active Substance: FUROSEMIDE
     Indication: CARDIAC FAILURE CONGESTIVE
     Dates: start: 20150610, end: 20180914
  2. CARVEDILOL. [Suspect]
     Active Substance: CARVEDILOL
     Indication: CARDIAC FAILURE CONGESTIVE
     Route: 048
     Dates: start: 20171211

REACTIONS (3)
  - Hypovolaemia [None]
  - Hypertension [None]
  - Orthostatic hypotension [None]

NARRATIVE: CASE EVENT DATE: 20180914
